FAERS Safety Report 22632264 (Version 2)
Quarter: 2023Q2

REPORT INFORMATION
  Report Type: Report from Study
  Country: US (occurrence: US)
  Receive Date: 20230623
  Receipt Date: 20230627
  Transmission Date: 20230722
  Serious: No
  Sender: FDA-Public Use
  Company Number: US-002147023-NVSC2023US141364

PATIENT
  Sex: Male

DRUGS (1)
  1. TRIAMCINOLONE [Suspect]
     Active Substance: TRIAMCINOLONE
     Indication: Psoriasis
     Dosage: UNK
     Route: 061

REACTIONS (9)
  - Skin lesion [Unknown]
  - Papule [Unknown]
  - Skin exfoliation [Unknown]
  - Erythema [Unknown]
  - Skin weeping [Unknown]
  - Skin haemorrhage [Unknown]
  - Seborrhoeic keratosis [Unknown]
  - Pruritus [Unknown]
  - Psoriasis [Unknown]
